FAERS Safety Report 23945525 (Version 1)
Quarter: 2024Q2

REPORT INFORMATION
  Report Type: Spontaneous
  Country: US (occurrence: US)
  Receive Date: 20240606
  Receipt Date: 20240606
  Transmission Date: 20240715
  Serious: No
  Sender: FDA-Public Use
  Company Number: US-HALEON-2180332

PATIENT
  Age: 67 Year
  Sex: Female

DRUGS (1)
  1. FLONASE HEADACHE AND ALLERGY RELIEF [Suspect]
     Active Substance: ACETAMINOPHEN\CHLORPHENIRAMINE MALEATE\PHENYLEPHRINE HYDROCHLORIDE
     Indication: Hypersensitivity
     Dosage: EXPDATE:20250930
     Dates: start: 20240606

REACTIONS (2)
  - Dizziness [Recovering/Resolving]
  - Somnolence [Not Recovered/Not Resolved]
